FAERS Safety Report 8383981-3 (Version None)
Quarter: 2012Q1

REPORT INFORMATION
  Report Type: 
  Country: None (occurrence: None)
  Receive Date: 20120323
  Receipt Date: 20110304
  Transmission Date: 20120608
  Serious: Yes (Other)
  Sender: FDA-Public Use
  Company Number: 163-21880-11030814

PATIENT
  Age: 47 Year
  Sex: Female
  Weight: 90.7194 kg

DRUGS (9)
  1. REVLIMID [Suspect]
     Indication: MULTIPLE MYELOMA
     Dosage: 25 MG, DAILY FOR 21 DAYS, PO
     Route: 048
     Dates: start: 20110111
  2. HYDROCHLOROTHIAZIDE [Concomitant]
  3. ZOFRAN [Concomitant]
  4. PROAIR (FLUTICASONE PROPIONATE) [Concomitant]
  5. DEXAMETHASONE [Concomitant]
  6. VERAPAMIL [Concomitant]
  7. ADVAIR HFA [Concomitant]
  8. VELCADE [Concomitant]
  9. ZOMETA [Concomitant]

REACTIONS (1)
  - MYALGIA [None]
